FAERS Safety Report 7268162-9 (Version None)
Quarter: 2011Q1

REPORT INFORMATION
  Report Type: 
  Country: None (occurrence: None)
  Receive Date: 20110201
  Receipt Date: 20110119
  Transmission Date: 20110831
  Serious: Yes (Hospitalization, Other)
  Sender: FDA-Public Use
  Company Number: DE-ELI_LILLY_AND_COMPANY-DE201101004692

PATIENT
  Sex: Female

DRUGS (7)
  1. CALCIUM [Concomitant]
  2. ENBREL [Concomitant]
  3. MARCUMAR [Concomitant]
  4. FORTEO [Suspect]
     Indication: OSTEOPOROSIS
     Route: 058
     Dates: start: 20100712
  5. VIGANTOL [Concomitant]
  6. MTX [Concomitant]
  7. VOLTAREN /SCH/ [Concomitant]

REACTIONS (3)
  - ACCIDENT [None]
  - PELVIC FRACTURE [None]
  - PUBIS FRACTURE [None]
